FAERS Safety Report 7758773-6 (Version None)
Quarter: 2011Q3

REPORT INFORMATION
  Report Type: 
  Country: None (occurrence: None)
  Receive Date: 20110919
  Receipt Date: 20100819
  Transmission Date: 20111222
  Serious: No
  Sender: FDA-Public Use
  Company Number: US-BAYER-201034017NA

PATIENT
  Age: 39 Year
  Sex: Female

DRUGS (1)
  1. MIRENA [Suspect]
     Indication: CONTRACEPTION
     Dosage: 20 ?G, CONT
     Route: 015
     Dates: start: 20091103, end: 20100501

REACTIONS (5)
  - HOT FLUSH [None]
  - ALOPECIA [None]
  - MOOD SWINGS [None]
  - VAGINAL HAEMORRHAGE [None]
  - PREMENSTRUAL SYNDROME [None]
